FAERS Safety Report 4665085-6 (Version None)
Quarter: 2005Q2

REPORT INFORMATION
  Report Type: 
  Country: None (occurrence: None)
  Receive Date: 20050517
  Receipt Date: 20050215
  Transmission Date: 20051028
  Serious: Yes (Hospitalization)
  Sender: FDA-Public Use
  Company Number: C05-T-018

PATIENT
  Age: 78 Year
  Sex: Female

DRUGS (7)
  1. THEOPHYLLINE [Suspect]
     Indication: CHRONIC OBSTRUCTIVE PULMONARY DISEASE
     Dosage: 600 MG PO
     Route: 048
  2. EVISTA [Concomitant]
  3. HYDROCHLOROTHIAZIDE [Concomitant]
  4. COMBIVENT [Concomitant]
  5. NEXIUM [Concomitant]
  6. QVAR 40 [Concomitant]
  7. DILTIAZEM [Concomitant]

REACTIONS (6)
  - EXTRASYSTOLES [None]
  - FEELING ABNORMAL [None]
  - HYPERTENSION [None]
  - HYPOKALAEMIA [None]
  - PALPITATIONS [None]
  - SINUS TACHYCARDIA [None]
